FAERS Safety Report 5629719-1 (Version None)
Quarter: 2008Q1

REPORT INFORMATION
  Report Type: 
  Country: None (occurrence: None)
  Receive Date: 20080218
  Receipt Date: 20080207
  Transmission Date: 20080703
  Serious: Yes (Other)
  Sender: FDA-Public Use
  Company Number: JP-MERCK-0712USA07257

PATIENT
  Age: 71 Year
  Sex: Female

DRUGS (5)
  1. FOSAMAX [Suspect]
     Indication: OSTEOPOROSIS
     Route: 048
     Dates: start: 20050101, end: 20071214
  2. CEFZON [Concomitant]
     Route: 048
     Dates: start: 20071120, end: 20071121
  3. VOLTAREN [Concomitant]
     Route: 048
     Dates: start: 20071120, end: 20071121
  4. MUCOSTA [Concomitant]
     Route: 048
     Dates: start: 20071120, end: 20071121
  5. [THERAPY UNSPECIFIED] [Concomitant]
     Route: 048

REACTIONS (4)
  - IMPAIRED HEALING [None]
  - OSTEITIS [None]
  - OSTEOMYELITIS [None]
  - OSTEONECROSIS [None]
